FAERS Safety Report 20692885 (Version 1)
Quarter: 2022Q2

REPORT INFORMATION
  Report Type: Spontaneous
  Country: US (occurrence: None)
  Receive Date: 20220407
  Receipt Date: 20220407
  Transmission Date: 20220721
  Serious: No
  Sender: FDA-Public Use
  Company Number: None

PATIENT
  Age: 82 Year
  Sex: Female

DRUGS (1)
  1. PROLIA [Suspect]
     Active Substance: DENOSUMAB
     Dosage: 60MG OTHER SUBCUTANEOUS
     Route: 058
     Dates: start: 20200101, end: 20211231

REACTIONS (2)
  - Tooth loss [None]
  - Necrosis [None]

NARRATIVE: CASE EVENT DATE: 20220407
